FAERS Safety Report 12700280 (Version 2)
Quarter: 2019Q3

REPORT INFORMATION
  Report Type: Report from Study
  Country: US (occurrence: US)
  Receive Date: 20160830
  Receipt Date: 20190923
  Transmission Date: 20191004
  Serious: No
  Sender: FDA-Public Use
  Company Number: US-SA-2015SA132856

PATIENT
  Sex: Male

DRUGS (1)
  1. AGALSIDASE BETA [Suspect]
     Active Substance: AGALSIDASE BETA
     Indication: FABRY^S DISEASE
     Dosage: 70.00 Q2
     Route: 041
     Dates: start: 20051115

REACTIONS (4)
  - Stress [Recovering/Resolving]
  - Infusion related reaction [Unknown]
  - Sleep disorder [Recovering/Resolving]
  - Malaise [Recovering/Resolving]
